FAERS Safety Report 5615682-6 (Version None)
Quarter: 2008Q1

REPORT INFORMATION
  Report Type: 
  Country: None (occurrence: None)
  Receive Date: 20080201
  Receipt Date: 20080124
  Transmission Date: 20080703
  Serious: Yes (Other)
  Sender: FDA-Public Use
  Company Number: GXKR2008IN01100

PATIENT
  Age: 65 Year
  Sex: Female

DRUGS (2)
  1. ZOLPIDEM [Suspect]
     Indication: INSOMNIA
     Dosage: 10  MG, ONCE/SINGLE
  2. RISPERIDONE [Concomitant]

REACTIONS (5)
  - DELIRIUM [None]
  - DISORIENTATION [None]
  - DRUG TOXICITY [None]
  - HALLUCINATIONS, MIXED [None]
  - SPEECH DISORDER [None]
